FAERS Safety Report 25585829 (Version 2)
Quarter: 2025Q3

REPORT INFORMATION
  Report Type: Spontaneous
  Country: US (occurrence: US)
  Receive Date: 20250721
  Receipt Date: 20250730
  Transmission Date: 20251021
  Serious: No
  Sender: BAYER HEALTHCARE PHARMACEUTICALS INC.
  Company Number: US-BAYER-2025A094969

PATIENT
  Age: 36 Year
  Sex: Female
  Weight: 56.699 kg

DRUGS (11)
  1. MIRENA [Suspect]
     Active Substance: LEVONORGESTREL
     Indication: Intrauterine contraception
     Dosage: 20?G/DAY
     Route: 015
     Dates: start: 20190319, end: 20240331
  2. CIMZIA [Concomitant]
     Active Substance: CERTOLIZUMAB PEGOL
     Dates: start: 20230602
  3. ZYRTEC [Concomitant]
     Active Substance: CETIRIZINE HYDROCHLORIDE
     Dosage: TAKE 10 MG BY MOUTH IN THE MORNING.
     Route: 048
     Dates: start: 20221018
  4. SLYND [Concomitant]
     Active Substance: DROSPIRENONE
     Dosage: TAKE 1 TABLET BY MOUTH IN THE MORNING
     Route: 048
     Dates: start: 20230919
  5. FLONASE [Concomitant]
     Active Substance: FLUTICASONE PROPIONATE
     Dates: start: 20221018
  6. PLAQUENIL [Concomitant]
     Active Substance: HYDROXYCHLOROQUINE SULFATE
     Dosage: 200 MG IN THE MORNING AND 200 MG IN THE EVENING
     Dates: start: 20230324
  7. ATARAX [Concomitant]
     Active Substance: HYDROXYZINE HYDROCHLORIDE
     Route: 048
  8. MELATONIN [Concomitant]
     Active Substance: MELATONIN
  9. VITAMINS [Concomitant]
     Active Substance: VITAMINS
     Dates: start: 20181029
  10. ENBREL [Concomitant]
     Active Substance: ETANERCEPT
  11. INFLUENZA VIRUS VACCINE [Concomitant]
     Active Substance: INFLUENZA VIRUS VACCINE
     Dates: start: 20181031

REACTIONS (12)
  - Joint swelling [None]
  - Arthralgia [None]
  - Fatigue [None]
  - Contusion [None]
  - Headache [None]
  - Device dislocation [Recovered/Resolved]
  - Pelvic pain [None]
  - Abnormal uterine bleeding [None]
  - Dysuria [None]
  - Amenorrhoea [Recovered/Resolved]
  - Nocturia [None]
  - Abdominal pain lower [Recovering/Resolving]

NARRATIVE: CASE EVENT DATE: 20190319
